FAERS Safety Report 20632180 (Version 1)
Quarter: 2022Q1

REPORT INFORMATION
  Report Type: Spontaneous
  Country: DE (occurrence: DE)
  Receive Date: 20220324
  Receipt Date: 20220324
  Transmission Date: 20220423
  Serious: Yes (Other)
  Sender: FDA-Public Use
  Company Number: DE-NOVARTISPH-NVSC2022DE065200

PATIENT
  Age: 3 Year
  Sex: Female

DRUGS (5)
  1. MEKINIST [Suspect]
     Active Substance: TRAMETINIB DIMETHYL SULFOXIDE
     Indication: Lymphangioma
     Dosage: 0.25 MG (? TABLET)
     Route: 065
     Dates: start: 202007
  2. MEKINIST [Suspect]
     Active Substance: TRAMETINIB DIMETHYL SULFOXIDE
     Dosage: UNK
     Route: 065
     Dates: end: 202202
  3. MEKINIST [Suspect]
     Active Substance: TRAMETINIB DIMETHYL SULFOXIDE
     Dosage: 0.75 MG
     Route: 065
     Dates: start: 202202
  4. CORTISONE [Suspect]
     Active Substance: CORTISONE
     Indication: Lymphangioma
     Dosage: UNK
     Route: 065
  5. SIROLIMUS [Suspect]
     Active Substance: SIROLIMUS
     Indication: Lymphangioma
     Dosage: UNK
     Route: 065

REACTIONS (10)
  - Gastrointestinal haemorrhage [Unknown]
  - Abdominal pain [Unknown]
  - Constipation [Recovered/Resolved]
  - Alopecia [Unknown]
  - Platelet count decreased [Unknown]
  - Diarrhoea [Unknown]
  - Drug intolerance [Unknown]
  - Product use issue [Unknown]
  - Product use in unapproved indication [Unknown]
  - Drug ineffective for unapproved indication [Not Recovered/Not Resolved]

NARRATIVE: CASE EVENT DATE: 20200101
